FAERS Safety Report 4386199-4 (Version None)
Quarter: 2004Q2

REPORT INFORMATION
  Report Type: 
  Country: None (occurrence: None)
  Receive Date: 20040628
  Receipt Date: 20040628
  Transmission Date: 20050107
  Serious: No
  Sender: FDA-Public Use
  Company Number: None

PATIENT
  Age: 71 Year
  Sex: Male

DRUGS (1)
  1. OMEPRAZOLE [Suspect]
     Dosage: 20 MG QD

REACTIONS (1)
  - GYNAECOMASTIA [None]
